FAERS Safety Report 18550797 (Version 1)
Quarter: 2020Q4

REPORT INFORMATION
  Report Type: Spontaneous
  Country: US (occurrence: US)
  Receive Date: 20201126
  Receipt Date: 20201126
  Transmission Date: 20210114
  Serious: Yes (Death, Other)
  Sender: FDA-Public Use
  Company Number: US-PFIZER INC-2019320174

PATIENT
  Age: 51 Year
  Sex: Male

DRUGS (1)
  1. LORBRENA [Suspect]
     Active Substance: LORLATINIB
     Indication: PANCREATIC CARCINOMA
     Dosage: 100 MG, UNK

REACTIONS (3)
  - Off label use [Unknown]
  - Death [Fatal]
  - Product use in unapproved indication [Unknown]
